FAERS Safety Report 10185409 (Version 1)
Quarter: 2014Q2

REPORT INFORMATION
  Report Type: Spontaneous
  Country: US (occurrence: None)
  Receive Date: 20140520
  Receipt Date: 20140520
  Transmission Date: 20141212
  Serious: Yes (Death)
  Sender: FDA-Public Use
  Company Number: None

PATIENT
  Age: 79 Year
  Sex: 0

DRUGS (11)
  1. PRIMIDONE [Suspect]
     Indication: ESSENTIAL TREMOR
     Route: 048
     Dates: start: 20130502, end: 20140513
  2. PLAVIX [Concomitant]
  3. FINASTERIDE [Concomitant]
  4. HCTZ [Concomitant]
  5. METOPROLOL [Concomitant]
  6. POTASSIUM CHLORIDE [Concomitant]
  7. FISH OIL [Concomitant]
  8. ISOSRBIDE MONONITRATE ER [Concomitant]
  9. LEVOTHYROXINE [Concomitant]
  10. B-12 [Concomitant]
  11. ASPIRIN [Concomitant]

REACTIONS (4)
  - Completed suicide [None]
  - Depression [None]
  - Confusional state [None]
  - Therapy change [None]
